FAERS Safety Report 20126845 (Version 1)
Quarter: 2021Q4

REPORT INFORMATION
  Report Type: Spontaneous
  Country: US (occurrence: None)
  Receive Date: 20211129
  Receipt Date: 20211129
  Transmission Date: 20220304
  Serious: Yes (Other)
  Sender: FDA-Public Use
  Company Number: None

PATIENT
  Age: 73 Year
  Sex: Male
  Weight: 80 kg

DRUGS (1)
  1. BAMLANIVIMAB\ETESEVIMAB [Suspect]
     Active Substance: BAMLANIVIMAB\ETESEVIMAB
     Indication: COVID-19 treatment
     Dosage: FREQUENCY : ONCE;?
     Route: 042
     Dates: start: 20211112, end: 20211112

REACTIONS (5)
  - Infusion related reaction [None]
  - Chest discomfort [None]
  - Chest pain [None]
  - Dyspnoea [None]
  - Blood pressure increased [None]

NARRATIVE: CASE EVENT DATE: 20211112
